FAERS Safety Report 22346219 (Version 2)
Quarter: 2023Q2

REPORT INFORMATION
  Report Type: Spontaneous
  Country: US (occurrence: US)
  Receive Date: 20230519
  Receipt Date: 20230613
  Transmission Date: 20230721
  Serious: Yes (Other)
  Sender: FDA-Public Use
  Company Number: US-UPSHER-SMITH LABORATORIES, LLC-2023USL00523

PATIENT
  Age: 15 Year
  Sex: Female
  Weight: 56.689 kg

DRUGS (7)
  1. ISOTRETINOIN [Suspect]
     Active Substance: ISOTRETINOIN
     Indication: Acne
     Dosage: 20 MG, 1X/DAY
     Route: 048
     Dates: start: 20230411, end: 20230511
  2. ALBUTEROL SULFATE [Concomitant]
     Active Substance: ALBUTEROL SULFATE
     Dosage: UNK, AS NEEDED
  3. AMOXICILLIN [Concomitant]
     Active Substance: AMOXICILLIN
  4. AZELASTINE [Concomitant]
     Active Substance: AZELASTINE
  5. POTASSIUM CITRATE [Concomitant]
     Active Substance: POTASSIUM CITRATE
  6. MELOXICAM [Concomitant]
     Active Substance: MELOXICAM
  7. MAGNESIUM [Concomitant]
     Active Substance: MAGNESIUM

REACTIONS (7)
  - Tearfulness [Recovering/Resolving]
  - Emotional distress [Recovering/Resolving]
  - Anxiety [Recovering/Resolving]
  - Brain fog [Recovering/Resolving]
  - Discomfort [Recovering/Resolving]
  - Mental impairment [Recovering/Resolving]
  - Inappropriate schedule of product administration [Recovered/Resolved]

NARRATIVE: CASE EVENT DATE: 20230411
